FAERS Safety Report 10572689 (Version 1)
Quarter: 2014Q4

REPORT INFORMATION
  Report Type: Spontaneous
  Country: US (occurrence: None)
  Receive Date: 20141107
  Receipt Date: 20141107
  Transmission Date: 20150529
  Serious: Yes (Life-Threatening, Hospitalization)
  Sender: FDA-Public Use
  Company Number: None

PATIENT
  Age: 63 Year
  Sex: Male

DRUGS (2)
  1. OXILAN [Suspect]
     Active Substance: IOXILAN
     Indication: COMPUTERISED TOMOGRAM
     Dates: start: 20140722, end: 20140722
  2. OXILAN [Suspect]
     Active Substance: IOXILAN
     Indication: HAEMATURIA
     Dates: start: 20140722, end: 20140722

REACTIONS (12)
  - Hypotension [None]
  - Headache [None]
  - Dyspnoea [None]
  - Refusal of treatment by patient [None]
  - Presyncope [None]
  - Respiratory distress [None]
  - Nasal congestion [None]
  - Neck pain [None]
  - Rash [None]
  - Tachycardia [None]
  - Dizziness [None]
  - Burning sensation [None]

NARRATIVE: CASE EVENT DATE: 20140722
